FAERS Safety Report 7698001 (Version 7)
Quarter: 2015Q2

REPORT INFORMATION
  Report Type: Report from Study
  Country: US (occurrence: US)
  Receive Date: 20101208
  Receipt Date: 20150414
  Transmission Date: 20150821
  Serious: Yes (Hospitalization, Other)
  Sender: FDA-Public Use
  Company Number: US-BIOGENIDEC-2010BI042070

PATIENT
  Age: 40 Year
  Sex: Female
  Weight: 100 kg

DRUGS (5)
  1. AVONEX [Suspect]
     Active Substance: INTERFERON BETA-1A
     Indication: MULTIPLE SCLEROSIS
     Route: 030
     Dates: start: 20000901, end: 2003
  2. AVONEX [Suspect]
     Active Substance: INTERFERON BETA-1A
     Indication: MULTIPLE SCLEROSIS
     Route: 030
     Dates: start: 2003, end: 2004
  3. AVONEX [Suspect]
     Active Substance: INTERFERON BETA-1A
     Indication: MULTIPLE SCLEROSIS
     Route: 030
     Dates: start: 200602
  4. AVONEX [Suspect]
     Active Substance: INTERFERON BETA-1A
     Indication: MULTIPLE SCLEROSIS
     Route: 030
     Dates: start: 2004
  5. AVONEX [Suspect]
     Active Substance: INTERFERON BETA-1A
     Indication: MULTIPLE SCLEROSIS
     Route: 030
     Dates: start: 200512, end: 200601

REACTIONS (20)
  - Sepsis [Recovered/Resolved]
  - Pelvic fracture [Recovered/Resolved]
  - Fractured sacrum [Recovered/Resolved]
  - Renal injury [Recovered/Resolved]
  - Nightmare [Unknown]
  - Fatigue [Unknown]
  - Road traffic accident [Recovered/Resolved]
  - Pelvic haemorrhage [Recovered/Resolved]
  - Femur fracture [Recovered/Resolved]
  - Clavicle fracture [Recovered/Resolved]
  - Wound [Recovered/Resolved]
  - Abasia [Recovered/Resolved]
  - Fibula fracture [Recovered/Resolved]
  - Post-traumatic stress disorder [Unknown]
  - Hypoaesthesia [Unknown]
  - Lumbar vertebral fracture [Recovered/Resolved]
  - Joint effusion [Not Recovered/Not Resolved]
  - Migraine [Recovered/Resolved]
  - Dysstasia [Recovered/Resolved]
  - Nerve injury [Unknown]

NARRATIVE: CASE EVENT DATE: 2010
